FAERS Safety Report 21495964 (Version 5)
Quarter: 2023Q4

REPORT INFORMATION
  Report Type: Report from Study
  Country: US (occurrence: US)
  Receive Date: 20221022
  Receipt Date: 20231124
  Transmission Date: 20240109
  Serious: No
  Sender: FDA-Public Use
  Company Number: US-NOVARTISTESTPH-NVSC2022US238529

PATIENT
  Age: 62 Year
  Sex: Male
  Weight: 92.99 kg

DRUGS (1)
  1. COSENTYX [Suspect]
     Active Substance: SECUKINUMAB
     Indication: Ankylosing spondylitis
     Dosage: 150 MG, QMO
     Route: 058
     Dates: start: 20191113

REACTIONS (4)
  - Injection site swelling [Unknown]
  - Injection site mass [Unknown]
  - Injection site discharge [Unknown]
  - Illness [Unknown]

NARRATIVE: CASE EVENT DATE: 20221020
